FAERS Safety Report 7728118-6 (Version None)
Quarter: 2011Q3

REPORT INFORMATION
  Report Type: 
  Country: None (occurrence: None)
  Receive Date: 20110905
  Receipt Date: 20110825
  Transmission Date: 20111222
  Serious: Yes (Other)
  Sender: FDA-Public Use
  Company Number: US-RANBAXY-2011RR-47317

PATIENT
  Sex: Female

DRUGS (12)
  1. CIPROFLOXACIN [Suspect]
     Indication: INFECTION
     Dosage: UNK
     Route: 065
     Dates: start: 20070701
  2. LEVAQUIN [Suspect]
     Dosage: 500 MG, UNK
     Route: 048
     Dates: start: 20090218
  3. PREDNISOLONE [Suspect]
     Dosage: 10 MG, UNK
     Route: 048
     Dates: start: 20090218
  4. LEVAQUIN [Suspect]
     Dosage: 500 MG, UNK
     Route: 048
     Dates: start: 20030514
  5. LEVAQUIN [Suspect]
     Dosage: 500 MG, UNK
     Route: 048
     Dates: start: 20080412
  6. LEVAQUIN [Suspect]
     Dosage: 500 MG, UNK
     Route: 048
     Dates: start: 20040819
  7. PREDNISOLONE [Suspect]
     Dosage: UNK
     Dates: start: 20050501
  8. PREDNISOLONE [Suspect]
     Indication: PAIN
     Dosage: 10 MG, UNK
     Route: 048
     Dates: start: 20080412
  9. LEVAQUIN [Suspect]
     Dosage: 500 MG, UNK
     Dates: start: 20071214
  10. CIPROFLOXACIN [Suspect]
     Dosage: UNK
     Dates: start: 20100301
  11. LEVAQUIN [Suspect]
     Indication: URINARY TRACT INFECTION
     Dosage: 500 MG, UNK
     Route: 048
     Dates: start: 20030513
  12. LEVAQUIN [Suspect]
     Dosage: 500 MG, UNK
     Route: 048
     Dates: start: 20060825

REACTIONS (1)
  - ROTATOR CUFF SYNDROME [None]
